FAERS Safety Report 18578627 (Version 1)
Quarter: 2020Q4

REPORT INFORMATION
  Report Type: Spontaneous
  Country: US (occurrence: US)
  Receive Date: 20201202
  Receipt Date: 20201202
  Transmission Date: 20210114
  Serious: Yes (Hospitalization)
  Sender: FDA-Public Use
  Company Number: None

PATIENT
  Age: 76 Year
  Sex: Male
  Weight: 103 kg

DRUGS (1)
  1. PEMBROLIZUMAB (PEMBROLIZUMAB 25MG/ML INJ, SOLN 4ML) [Suspect]
     Active Substance: PEMBROLIZUMAB
     Route: 042
     Dates: start: 20181002, end: 20200320

REACTIONS (4)
  - Respiratory failure [None]
  - Pneumonitis [None]
  - Dyspnoea [None]
  - Lung opacity [None]

NARRATIVE: CASE EVENT DATE: 20200301
